FAERS Safety Report 8205137-7 (Version None)
Quarter: 2012Q1

REPORT INFORMATION
  Report Type: 
  Country: None (occurrence: None)
  Receive Date: 20120313
  Receipt Date: 20120305
  Transmission Date: 20120608
  Serious: Yes (Hospitalization)
  Sender: FDA-Public Use
  Company Number: JP-GLAXOSMITHKLINE-B0771429A

PATIENT
  Sex: Female

DRUGS (5)
  1. LAMICTAL [Suspect]
     Indication: EPILEPSY
     Dosage: 50MG PER DAY
     Route: 048
     Dates: start: 20111114, end: 20111123
  2. LAMICTAL [Suspect]
     Dosage: 100MG PER DAY
     Route: 048
     Dates: start: 20111124, end: 20111217
  3. PHENYTOIN SODIUM CAP [Suspect]
     Indication: EPILEPSY
     Dosage: 250MG PER DAY
     Route: 042
     Dates: start: 20111113, end: 20111113
  4. TEGRETOL [Suspect]
     Indication: EPILEPSY
     Dosage: 200MG PER DAY
     Route: 048
     Dates: start: 20111113, end: 20111114
  5. MAGNEVIST [Suspect]
     Dosage: 15ML PER DAY
     Route: 042
     Dates: start: 20111216, end: 20111216

REACTIONS (21)
  - STEVENS-JOHNSON SYNDROME [None]
  - VULVAR EROSION [None]
  - LIVER DISORDER [None]
  - ORAL MUCOSA EROSION [None]
  - LYMPHOCYTE PERCENTAGE DECREASED [None]
  - RASH MACULO-PAPULAR [None]
  - PYREXIA [None]
  - NEUTROPHIL PERCENTAGE INCREASED [None]
  - ERYTHEMA [None]
  - DIARRHOEA [None]
  - DRUG RASH WITH EOSINOPHILIA AND SYSTEMIC SYMPTOMS [None]
  - ASPARTATE AMINOTRANSFERASE INCREASED [None]
  - RASH GENERALISED [None]
  - WHITE BLOOD CELL COUNT INCREASED [None]
  - C-REACTIVE PROTEIN INCREASED [None]
  - ALANINE AMINOTRANSFERASE INCREASED [None]
  - OCULAR HYPERAEMIA [None]
  - LIP EROSION [None]
  - LYMPHADENOPATHY [None]
  - VOMITING [None]
  - INFECTIOUS PERITONITIS [None]
